FAERS Safety Report 24778948 (Version 1)
Quarter: 2024Q4

REPORT INFORMATION
  Report Type: Spontaneous
  Country: US (occurrence: US)
  Receive Date: 20241226
  Receipt Date: 20241226
  Transmission Date: 20250115
  Serious: No
  Sender: ABBVIE
  Company Number: US-ABBVIE-6064862

PATIENT

DRUGS (1)
  1. SKYRIZI [Suspect]
     Active Substance: RISANKIZUMAB-RZAA
     Indication: Product used for unknown indication
     Dosage: STRENGTH 150MG/ML
     Route: 058

REACTIONS (2)
  - Symptom recurrence [Unknown]
  - Device defective [Unknown]

NARRATIVE: CASE EVENT DATE: 20241028
